FAERS Safety Report 9010455 (Version 4)
Quarter: 2015Q4

REPORT INFORMATION
  Report Type: Spontaneous
  Country: US (occurrence: US)
  Receive Date: 20130109
  Receipt Date: 20151105
  Transmission Date: 20160305
  Serious: Yes (Death, Hospitalization, Disabling, Other)
  Sender: FDA-Public Use
  Company Number: US-009507513-1301USA002421

PATIENT
  Sex: Male
  Weight: 65.31 kg

DRUGS (7)
  1. JANUVIA [Suspect]
     Active Substance: SITAGLIPTIN PHOSPHATE
     Dosage: 50 MG, QD
     Route: 048
     Dates: start: 2007, end: 201012
  2. BYETTA [Suspect]
     Active Substance: EXENATIDE
     Dosage: UNK
     Dates: start: 2007, end: 201012
  3. VICTOZA [Suspect]
     Active Substance: LIRAGLUTIDE
     Dosage: UNK
     Dates: start: 2007, end: 201012
  4. BYDUREON [Suspect]
     Active Substance: EXENATIDE
     Dosage: UNK
     Dates: start: 2007, end: 201012
  5. TRADJENTA [Suspect]
     Active Substance: LINAGLIPTIN
     Dosage: UNK
     Dates: start: 2007, end: 201012
  6. JANUMET [Suspect]
     Active Substance: METFORMIN HYDROCHLORIDE\SITAGLIPTIN PHOSPHATE
     Indication: TYPE 2 DIABETES MELLITUS
     Dosage: UNK
     Route: 048
     Dates: start: 2007, end: 201012
  7. JANUVIA [Suspect]
     Active Substance: SITAGLIPTIN PHOSPHATE
     Indication: TYPE 2 DIABETES MELLITUS
     Dosage: 100 MG, QD
     Route: 048
     Dates: start: 2007, end: 201012

REACTIONS (12)
  - Pneumonia [Unknown]
  - Gout [Unknown]
  - Pancreaticoduodenectomy [Unknown]
  - Back pain [Unknown]
  - Radiotherapy [Unknown]
  - Biopsy liver [Unknown]
  - Oedema peripheral [Unknown]
  - Biopsy pancreas [Unknown]
  - Atrial fibrillation [Unknown]
  - Pancreatic carcinoma metastatic [Fatal]
  - Cholecystectomy [Unknown]
  - Benign prostatic hyperplasia [Unknown]

NARRATIVE: CASE EVENT DATE: 200704
